FAERS Safety Report 12928040 (Version 1)
Quarter: 2016Q4

REPORT INFORMATION
  Report Type: Spontaneous
  Country: US (occurrence: US)
  Receive Date: 20161110
  Receipt Date: 20161110
  Transmission Date: 20170207
  Serious: Yes (Hospitalization, Disabling, Other)
  Sender: FDA-Public Use
  Company Number: None

PATIENT
  Age: 72 Year
  Sex: Female
  Weight: 58.57 kg

DRUGS (23)
  1. SIMVASTATIN. [Concomitant]
     Active Substance: SIMVASTATIN
  2. VALSARTAN. [Suspect]
     Active Substance: VALSARTAN
  3. ASPIRIN. [Concomitant]
     Active Substance: ASPIRIN
  4. CALCITONIN COMBIVENT [Concomitant]
  5. PREDNISONE. [Suspect]
     Active Substance: PREDNISONE
     Indication: AORTIC DISORDER
  6. OXYCODONE [Concomitant]
     Active Substance: OXYCODONE
  7. EFFEXOR [Concomitant]
     Active Substance: VENLAFAXINE HYDROCHLORIDE
  8. NORVASC [Concomitant]
     Active Substance: AMLODIPINE BESYLATE
  9. PRIMIDONE. [Concomitant]
     Active Substance: PRIMIDONE
  10. TOPAMAX [Concomitant]
     Active Substance: TOPIRAMATE
  11. COREG [Concomitant]
     Active Substance: CARVEDILOL
  12. CYANOCOBALAMIN. [Concomitant]
     Active Substance: CYANOCOBALAMIN
  13. LEVALBUTEROL. [Concomitant]
     Active Substance: LEVALBUTEROL
  14. VALIUM [Concomitant]
     Active Substance: DIAZEPAM
  15. CARVEDILOL. [Suspect]
     Active Substance: CARVEDILOL
  16. LASIX [Concomitant]
     Active Substance: FUROSEMIDE
  17. IPRATROPIUM [Concomitant]
     Active Substance: IPRATROPIUM
  18. NITROGLYCERIN. [Concomitant]
     Active Substance: NITROGLYCERIN
  19. AMITRIPTYLINE [Concomitant]
     Active Substance: AMITRIPTYLINE
  20. PROTONIX [Concomitant]
     Active Substance: PANTOPRAZOLE SODIUM
  21. BREO ELLIPTA [Concomitant]
     Active Substance: FLUTICASONE FUROATE\VILANTEROL TRIFENATATE
  22. AMLODIPINE BESYLATE. [Suspect]
     Active Substance: AMLODIPINE BESYLATE
  23. MOCLIZINE [Concomitant]

REACTIONS (4)
  - Feeling drunk [None]
  - Asthma [None]
  - Fracture [None]
  - Vision blurred [None]

NARRATIVE: CASE EVENT DATE: 20151108
